FAERS Safety Report 16651117 (Version 6)
Quarter: 2020Q2

REPORT INFORMATION
  Report Type: Report from Study
  Country: US (occurrence: US)
  Receive Date: 20190731
  Receipt Date: 20200501
  Transmission Date: 20200713
  Serious: Yes (Death, Life-Threatening, Hospitalization, Other)
  Sender: FDA-Public Use
  Company Number: US-ROCHE-2364298

PATIENT
  Age: 68 Year
  Sex: Male
  Weight: 57.7 kg

DRUGS (28)
  1. NAPROXEN. [Concomitant]
     Active Substance: NAPROXEN
     Indication: RADICULOPATHY
  2. SODIUM BICARBONATE. [Concomitant]
     Active Substance: SODIUM BICARBONATE
     Indication: METABOLIC ACIDOSIS
     Route: 042
     Dates: start: 20190725, end: 20190726
  3. ESZOPICLONE. [Concomitant]
     Active Substance: ESZOPICLONE
     Indication: INSOMNIA
     Route: 048
     Dates: end: 20190725
  4. HEPARIN [Concomitant]
     Active Substance: HEPARIN SODIUM
     Dosage: 53 UNITS
     Route: 042
     Dates: start: 20190725, end: 20190725
  5. CALCIUM GLUCONATE. [Concomitant]
     Active Substance: CALCIUM GLUCONATE
     Indication: HYPERKALAEMIA
     Route: 042
     Dates: start: 20190725, end: 20190725
  6. FAMOTIDINE. [Concomitant]
     Active Substance: FAMOTIDINE
     Indication: ABDOMINAL DISCOMFORT
     Route: 050
     Dates: start: 20190725, end: 20190725
  7. AMLODIPINE [Concomitant]
     Active Substance: AMLODIPINE BESYLATE
     Indication: HYPERTENSION
     Route: 048
     Dates: end: 20190725
  8. IODIXANOL. [Concomitant]
     Active Substance: IODIXANOL
     Route: 042
     Dates: start: 20190725, end: 20190725
  9. ALBUTEROL [SALBUTAMOL] [Concomitant]
     Active Substance: ALBUTEROL
     Dosage: 8 PUFF
     Route: 055
     Dates: start: 20190725, end: 20190725
  10. GABAPENTIN. [Concomitant]
     Active Substance: GABAPENTIN
     Indication: RADICULOPATHY
     Route: 048
     Dates: end: 20190725
  11. INSULIN [Concomitant]
     Active Substance: INSULIN NOS
     Indication: BLOOD GLUCOSE INCREASED
     Dosage: 3 UNITS
     Route: 058
     Dates: start: 20190725, end: 20190725
  12. DEXTROSE. [Concomitant]
     Active Substance: DEXTROSE
     Indication: BLOOD GLUCOSE DECREASED
     Route: 042
     Dates: start: 20190725, end: 20190725
  13. VASOPRESSIN. [Concomitant]
     Active Substance: VASOPRESSIN
     Indication: BLOOD PRESSURE MEASUREMENT
     Dosage: 0.08 UNITS
     Route: 042
     Dates: start: 20190725, end: 20190726
  14. SODIUM CHLORIDE 0.9% [Concomitant]
     Active Substance: SODIUM CHLORIDE
     Indication: SHOCK
     Route: 042
     Dates: start: 20190725, end: 20190725
  15. LISINOPRIL. [Concomitant]
     Active Substance: LISINOPRIL
     Indication: HYPERTENSION
     Route: 048
     Dates: end: 20190725
  16. PROPOFOL. [Concomitant]
     Active Substance: PROPOFOL
     Route: 042
     Dates: start: 20190725, end: 20190725
  17. NOREPINEPHRINE. [Concomitant]
     Active Substance: NOREPINEPHRINE
     Indication: SHOCK
     Route: 042
     Dates: start: 20190725, end: 20190726
  18. NAPROXEN. [Concomitant]
     Active Substance: NAPROXEN
     Indication: BACK PAIN
     Route: 048
     Dates: end: 20190725
  19. DEXTROSE. [Concomitant]
     Active Substance: DEXTROSE
     Indication: SHOCK
     Route: 042
     Dates: start: 20190725, end: 20190726
  20. PHENYLEPHRINE [Concomitant]
     Active Substance: PHENYLEPHRINE HYDROCHLORIDE
     Indication: BLOOD PRESSURE MEASUREMENT
     Route: 042
     Dates: start: 20190725, end: 20190725
  21. LABETALOL [Concomitant]
     Active Substance: LABETALOL\LABETALOL HYDROCHLORIDE
     Indication: HYPERTENSION
     Route: 042
     Dates: start: 20190725, end: 20190725
  22. TENECTEPLASE [Suspect]
     Active Substance: TENECTEPLASE
     Indication: THROMBOLYSIS
     Dosage: TENECTEPLASE ADMINISTERED AS A SINGLE BOLUS INJECTION OVER 5 SECONDS.
     Route: 042
  23. EPINEPHRINE. [Concomitant]
     Active Substance: EPINEPHRINE
     Indication: SHOCK
     Route: 042
     Dates: start: 20190725, end: 20190725
  24. SODIUM CHLORIDE 0.9% [Concomitant]
     Active Substance: SODIUM CHLORIDE
     Indication: BLOOD PRESSURE MEASUREMENT
  25. LIDOCAINE. [Concomitant]
     Active Substance: LIDOCAINE
     Indication: LOCAL ANAESTHESIA
     Route: 058
     Dates: start: 20190725, end: 20190725
  26. CHLORHEXIDINE [Concomitant]
     Active Substance: CHLORHEXIDINE
     Route: 048
     Dates: start: 20190725, end: 20190725
  27. SENNA [Concomitant]
     Active Substance: SENNA LEAF\SENNOSIDES\SENNOSIDES A AND B
     Indication: CONSTIPATION
     Route: 048
     Dates: start: 20190725, end: 20190725
  28. NICARDIPINE [Concomitant]
     Active Substance: NICARDIPINE
     Indication: HYPERTENSION
     Route: 042
     Dates: start: 20190725, end: 20190725

REACTIONS (5)
  - Coagulopathy [Not Recovered/Not Resolved]
  - Respiratory failure [Not Recovered/Not Resolved]
  - Renal failure [Not Recovered/Not Resolved]
  - Distributive shock [Fatal]
  - Haemorrhage intracranial [Not Recovered/Not Resolved]

NARRATIVE: CASE EVENT DATE: 20190725
